FAERS Safety Report 6078105-1 (Version None)
Quarter: 2009Q1

REPORT INFORMATION
  Report Type: 
  Country: None (occurrence: None)
  Receive Date: 20090213
  Receipt Date: 20090202
  Transmission Date: 20090719
  Serious: Yes (Hospitalization, Other)
  Sender: FDA-Public Use
  Company Number: PL-PFIZER INC-2008024672

PATIENT

DRUGS (14)
  1. BLINDED *PLACEBO [Suspect]
     Dosage: UNK
     Route: 048
     Dates: start: 20060913, end: 20070309
  2. EPLERENONE [Suspect]
     Dosage: UNK
     Route: 048
     Dates: start: 20060913, end: 20070309
  3. RAMIPRIL [Concomitant]
     Route: 048
     Dates: start: 20071017
  4. BISOPROLOL FUMARATE [Concomitant]
     Route: 048
     Dates: start: 20071018
  5. FUROSEMIDE [Concomitant]
     Route: 048
     Dates: start: 20071013
  6. DIGOXIN [Concomitant]
     Route: 048
     Dates: start: 20071004
  7. SPIRONOL [Concomitant]
     Route: 048
     Dates: start: 20071004
  8. TORSEMIDE [Concomitant]
     Route: 048
     Dates: start: 20071005
  9. AUGMENTIN '125' [Concomitant]
     Route: 048
     Dates: start: 20071005, end: 20071015
  10. MUCOSOLVAN [Concomitant]
     Route: 048
     Dates: start: 20071005, end: 20071016
  11. MIFLONIDE [Concomitant]
     Route: 048
     Dates: start: 20071017
  12. FORMOTEROL FUMARATE [Concomitant]
     Route: 048
     Dates: start: 20071017
  13. MILURIT [Concomitant]
     Route: 048
     Dates: start: 20071017
  14. CLORANXEN [Concomitant]
     Route: 048
     Dates: start: 20071011

REACTIONS (3)
  - BREAST NEOPLASM [None]
  - CARDIAC FAILURE [None]
  - CONDITION AGGRAVATED [None]
